FAERS Safety Report 8963948 (Version 2)
Quarter: 2013Q1

REPORT INFORMATION
  Report Type: Spontaneous
  Country: US (occurrence: US)
  Receive Date: 20121214
  Receipt Date: 20130308
  Transmission Date: 20140127
  Serious: Yes (Death, Other)
  Sender: FDA-Public Use
  Company Number: US-PFIZER INC-2012315953

PATIENT
  Age: 41 Year
  Sex: Female
  Weight: 142 kg

DRUGS (7)
  1. GEODON [Suspect]
     Indication: BIPOLAR DISORDER
     Dosage: 2X/DAY (40 MG IN MORNING AND 160MG AT NIGHT)
     Route: 048
  2. GEODON [Suspect]
     Indication: POST-TRAUMATIC STRESS DISORDER
  3. PROZAC [Concomitant]
     Dosage: 30 MG, 1X/DAY
  4. ATIVAN [Concomitant]
     Dosage: 0.5 MG, 2X/DAY
  5. AMBIEN [Concomitant]
     Dosage: 10 MG, 1X/DAY AT NIGHT
  6. PRAZOSIN [Concomitant]
     Dosage: 1 MG, DAILY AT NIGHT
  7. LAMICTAL [Concomitant]
     Dosage: 100 MG, 2X/DAY

REACTIONS (1)
  - Death [Fatal]
